FAERS Safety Report 9008287 (Version 1)
Quarter: 2013Q1

REPORT INFORMATION
  Report Type: Spontaneous
  Country: US (occurrence: US)
  Receive Date: 20130111
  Receipt Date: 20130111
  Transmission Date: 20140127
  Serious: Yes (Other)
  Sender: FDA-Public Use
  Company Number: US-BAYER-2013-001429

PATIENT
  Age: 63 Year
  Sex: Female

DRUGS (1)
  1. DESONATE GEL [Suspect]
     Dosage: UNK
     Dates: start: 20130102

REACTIONS (3)
  - Pruritus [None]
  - Dermatitis infected [None]
  - Rash [None]
